FAERS Safety Report 6188877-3 (Version None)
Quarter: 2009Q2

REPORT INFORMATION
  Report Type: 
  Country: None (occurrence: None)
  Receive Date: 20090513
  Receipt Date: 20090505
  Transmission Date: 20091009
  Serious: Yes (Other)
  Sender: FDA-Public Use
  Company Number: PHHY2009TR17101

PATIENT
  Age: 60 Year
  Sex: Female

DRUGS (6)
  1. VOLTAREN [Suspect]
     Indication: RHEUMATOID ARTHRITIS
  2. VOLTAREN [Suspect]
     Dosage: UNK
  3. METHOTREXATE [Concomitant]
  4. DELTACORTRIL [Concomitant]
  5. CANDESARTAN [Concomitant]
  6. LANSOR [Concomitant]

REACTIONS (1)
  - CONDUCTIVE DEAFNESS [None]
